FAERS Safety Report 23044800 (Version 1)
Quarter: 2023Q4

REPORT INFORMATION
  Report Type: Spontaneous
  Country: GB (occurrence: GB)
  Receive Date: 20231009
  Receipt Date: 20231009
  Transmission Date: 20240109
  Serious: Yes (Other)
  Sender: FDA-Public Use
  Company Number: GB-MYLANLABS-2023M1105209

PATIENT
  Age: 47 Year
  Sex: Female

DRUGS (4)
  1. RIFAMPIN [Suspect]
     Active Substance: RIFAMPIN
     Indication: Tuberculosis
     Dosage: UNK
     Route: 065
  2. RIFAMPIN [Suspect]
     Active Substance: RIFAMPIN
     Dosage: TREATMENT WAS INTERRUPTED AND RESTARTED LATER
     Route: 065
  3. ISONIAZID [Suspect]
     Active Substance: ISONIAZID
     Indication: Tuberculosis
     Dosage: UNK
     Route: 065
  4. ISONIAZID [Suspect]
     Active Substance: ISONIAZID
     Dosage: TREATMENT WAS INTERRUPTED AND RESTARTED LATER
     Route: 065

REACTIONS (4)
  - Type I hypersensitivity [Unknown]
  - Periorbital oedema [Unknown]
  - Urticaria [Unknown]
  - Type IV hypersensitivity reaction [Unknown]
